FAERS Safety Report 8474824-8 (Version None)
Quarter: 2012Q2

REPORT INFORMATION
  Report Type: 
  Country: None (occurrence: None)
  Receive Date: 20120628
  Receipt Date: 20120618
  Transmission Date: 20120825
  Serious: Yes (Death, Life-Threatening, Other)
  Sender: FDA-Public Use
  Company Number: JP-GENZYME-THYM-1002998

PATIENT
  Sex: Male
  Weight: 55 kg

DRUGS (19)
  1. THYMOGLOBULIN [Suspect]
     Indication: BONE MARROW CONDITIONING REGIMEN
     Dosage: 55 MG, QD
     Route: 042
     Dates: start: 20110709, end: 20110710
  2. SIVELESTAT [Concomitant]
     Indication: PROPHYLAXIS
     Dosage: UNK
     Route: 065
     Dates: start: 20110820, end: 20110826
  3. VANCOMYCIN HYDROCHLORIDE [Concomitant]
     Indication: INFECTION PROPHYLAXIS
     Dosage: UNK
     Route: 065
     Dates: start: 20110817, end: 20110826
  4. DIAZEPAM [Concomitant]
     Indication: PROPHYLAXIS
     Dosage: UNK
     Route: 065
     Dates: start: 20110825, end: 20110827
  5. MYCOPHENOLATE MOFETIL [Concomitant]
     Indication: PROPHYLAXIS AGAINST GRAFT VERSUS HOST DISEASE
     Dosage: UNK
     Route: 065
     Dates: start: 20110729
  6. METHYLPEDNISOLONE SODIUM SUCCINATE [Concomitant]
     Indication: PROPHYLAXIS AGAINST GRAFT VERSUS HOST DISEASE
     Dosage: UNK
     Route: 065
     Dates: start: 20110709
  7. IMIPENEM [Concomitant]
     Indication: INFECTION PROPHYLAXIS
     Dosage: UNK
     Route: 065
     Dates: start: 20110822, end: 20110825
  8. ZOSYN [Concomitant]
     Indication: INFECTION PROPHYLAXIS
     Dosage: UNK
     Route: 065
     Dates: start: 20110819, end: 20110822
  9. ARBEKACIN SULFATE [Concomitant]
     Indication: ASPERGILLOSIS
     Dosage: UNK
     Route: 065
     Dates: start: 20110819, end: 20110824
  10. SULFAMETHOPRIM [Concomitant]
     Indication: INFECTION PROPHYLAXIS
     Dosage: UNK
     Route: 065
     Dates: start: 20110709
  11. AMPHOTERICIN B [Concomitant]
     Indication: ASPERGILLOSIS
     Dosage: UNK
     Route: 065
     Dates: start: 20110817, end: 20110828
  12. PANIPENEM [Concomitant]
     Indication: INFECTION PROPHYLAXIS
     Dosage: UNK
     Route: 065
     Dates: start: 20110817, end: 20110828
  13. TACROLIMUS [Concomitant]
     Indication: BONE MARROW CONDITIONING REGIMEN
  14. DOPAMINE HCL [Concomitant]
     Indication: PROPHYLAXIS
     Dosage: UNK
     Route: 065
     Dates: start: 20110826, end: 20110827
  15. PHENYTOIN [Concomitant]
     Indication: PROPHYLAXIS
     Dosage: UNK
     Route: 065
     Dates: start: 20110825, end: 20110825
  16. FLUDARABINE PHOSPHATE [Concomitant]
     Indication: BONE MARROW CONDITIONING REGIMEN
     Dosage: UNK
     Route: 065
     Dates: start: 20110703, end: 20110708
  17. BUSULFAN [Concomitant]
     Indication: BONE MARROW CONDITIONING REGIMEN
     Dosage: UNK
     Route: 065
     Dates: start: 20110707, end: 20110708
  18. TACROLIMUS [Concomitant]
     Indication: PROPHYLAXIS AGAINST GRAFT VERSUS HOST DISEASE
     Dosage: UNK
     Route: 065
     Dates: start: 20110709, end: 20110728
  19. VALACYCLOVIR HYDROCHLORIDE [Concomitant]
     Indication: INFECTION PROPHYLAXIS
     Dosage: UNK
     Route: 065
     Dates: start: 20110709, end: 20110826

REACTIONS (3)
  - BRONCHOPULMONARY ASPERGILLOSIS [None]
  - PNEUMOTHORAX [None]
  - GRAFT VERSUS HOST DISEASE [None]
